FAERS Safety Report 6308254-1 (Version None)
Quarter: 2009Q3

REPORT INFORMATION
  Report Type: 
  Country: None (occurrence: None)
  Receive Date: 20090813
  Receipt Date: 20090804
  Transmission Date: 20100115
  Serious: Yes (Hospitalization)
  Sender: FDA-Public Use
  Company Number: US-ABBOTT-09P-163-0589591-00

PATIENT
  Sex: Female
  Weight: 59.02 kg

DRUGS (11)
  1. HUMIRA [Suspect]
     Indication: RHEUMATOID ARTHRITIS
     Route: 058
     Dates: start: 20070701
  2. CYMBALTA [Concomitant]
     Indication: DEPRESSION
  3. CYMBALTA [Concomitant]
     Indication: FIBROMYALGIA
  4. LYRICA [Concomitant]
     Indication: RHEUMATOID ARTHRITIS
  5. SEROQUEL [Concomitant]
     Indication: DEPRESSION
     Dates: start: 20090803
  6. OXYCODONE [Concomitant]
     Indication: ARTHRALGIA
  7. OXYCODONE [Concomitant]
  8. METHOTREXATE [Concomitant]
     Indication: RHEUMATOID ARTHRITIS
     Route: 058
     Dates: start: 20070701
  9. METOPROLOL SUCCINATE [Concomitant]
     Indication: HYPERTENSION
  10. ALBUTEROL [Concomitant]
     Indication: PNEUMONIA
  11. ALBUTEROL [Concomitant]
     Indication: ASTHMA

REACTIONS (10)
  - APNOEA [None]
  - CARDIAC ARREST [None]
  - DYSPNOEA [None]
  - IMMUNE SYSTEM DISORDER [None]
  - LOSS OF CONSCIOUSNESS [None]
  - PAIN [None]
  - PNEUMONIA ASPIRATION [None]
  - PULMONARY OEDEMA [None]
  - VITAMIN D DECREASED [None]
  - WHITE BLOOD CELL COUNT DECREASED [None]
